FAERS Safety Report 6844628-8 (Version None)
Quarter: 2010Q3

REPORT INFORMATION
  Report Type: 
  Country: None (occurrence: None)
  Receive Date: 20100715
  Receipt Date: 20100712
  Transmission Date: 20110219
  Serious: Yes (Life-Threatening, Disabling)
  Sender: FDA-Public Use
  Company Number: US-MERCK-1006USA03642

PATIENT
  Age: 69 Year
  Sex: Male

DRUGS (1)
  1. EMEND IV [Suspect]
     Indication: PROPHYLAXIS OF NAUSEA AND VOMITING
     Route: 041
     Dates: start: 20100414

REACTIONS (2)
  - CHEST DISCOMFORT [None]
  - DYSPNOEA [None]
